FAERS Safety Report 13932780 (Version 1)
Quarter: 2017Q3

REPORT INFORMATION
  Report Type: Spontaneous
  Country: CN (occurrence: CN)
  Receive Date: 20170904
  Receipt Date: 20170904
  Transmission Date: 20171127
  Serious: Yes (Hospitalization)
  Sender: FDA-Public Use
  Company Number: CN-SUN PHARMACEUTICAL INDUSTRIES LTD-2016R1-119770

PATIENT
  Age: 48 Year
  Sex: Female

DRUGS (2)
  1. DOXYCYCLINE. [Suspect]
     Active Substance: DOXYCYCLINE
     Indication: BRUCELLOSIS
     Dosage: 100 MG, BID
     Route: 065
     Dates: start: 20151021, end: 20151108
  2. RIFAMPICIN [Concomitant]
     Active Substance: RIFAMPIN
     Indication: BRUCELLOSIS
     Dosage: 900 MG, DAILY
     Route: 065
     Dates: start: 20151021, end: 20151028

REACTIONS (1)
  - Pyrexia [Recovered/Resolved]

NARRATIVE: CASE EVENT DATE: 20151028
